FAERS Safety Report 7900335-1 (Version None)
Quarter: 2011Q4

REPORT INFORMATION
  Report Type: 
  Country: None (occurrence: None)
  Receive Date: 20111104
  Receipt Date: 20111028
  Transmission Date: 20120403
  Serious: Yes (Other)
  Sender: FDA-Public Use
  Company Number: GER/UKI/11/0021745

PATIENT
  Age: 65 Year
  Sex: Female
  Weight: 61.7 kg

DRUGS (21)
  1. NAPROXEN [Suspect]
     Indication: PRODUCT USED FOR UNKNOWN INDICATION
     Dates: start: 20111019
  2. GAVISCON ADVANCE (GAVISCON ADVANCE) [Concomitant]
  3. ISOSORBIDE MONONITRATE [Concomitant]
  4. LACTULOSE [Concomitant]
  5. CHLORPROMAZINE [Concomitant]
  6. ACETAMINOPHEN [Concomitant]
  7. TRAMADOL HCL [Concomitant]
  8. NITROGLYCERIN [Concomitant]
  9. PREDNISOLONE [Concomitant]
  10. TEGRETOL [Concomitant]
  11. VENTOLIN [Concomitant]
  12. CLOPIXOL (ZUCLOPENTHIXOL ACETATE) [Concomitant]
  13. EUMOVATE (CLOBETASONE BUTYRATE) [Concomitant]
  14. OMEPRAZOLE [Concomitant]
  15. PROCYCLIDINE HYDROCHLORIDE 2MG TAB [Concomitant]
  16. BETNOVATE (BETAMETHASONE VALERATE) [Concomitant]
  17. DIAZEPAM [Concomitant]
  18. E-45 (ACUAFIL) [Concomitant]
  19. CLENIL MODULITE (BECLOMETASONE DIPROPIONATE) [Concomitant]
  20. LORAZEPAM [Concomitant]
  21. ZOPICLONE (ZOPICLONE) [Concomitant]

REACTIONS (1)
  - BLISTER [None]
